FAERS Safety Report 16084818 (Version 1)
Quarter: 2019Q1

REPORT INFORMATION
  Report Type: Spontaneous
  Country: US (occurrence: US)
  Receive Date: 20190318
  Receipt Date: 20190318
  Transmission Date: 20190418
  Serious: No
  Sender: FDA-Public Use
  Company Number: US-AVADEL SPECIALTY PHARMACEUTICALS, LLC-2019AVA00023

PATIENT
  Age: 75 Year
  Sex: Female
  Weight: 95.24 kg

DRUGS (11)
  1. LOSARTAN. [Concomitant]
     Active Substance: LOSARTAN
  2. EYE CAP VITAMIN [Concomitant]
  3. FOLIC ACID. [Concomitant]
     Active Substance: FOLIC ACID
  4. CARVEDILOL. [Concomitant]
     Active Substance: CARVEDILOL
     Dosage: 12.5 MG
  5. CALCIUM [Concomitant]
     Active Substance: CALCIUM
  6. FLUTICASONE. [Concomitant]
     Active Substance: FLUTICASONE
     Dosage: UNK, AS NEEDED
  7. VITAMIN C [Concomitant]
     Active Substance: ASCORBIC ACID
  8. NOCTIVA [Suspect]
     Active Substance: DESMOPRESSIN ACETATE
     Indication: NOCTURIA
     Dosage: 0.83 ?G, 1X/DAY 30 MINUTES BEFORE BED
     Route: 045
     Dates: start: 20190116
  9. PRAVASTATIN. [Concomitant]
     Active Substance: PRAVASTATIN
  10. FISH OIL [Concomitant]
     Active Substance: FISH OIL
  11. ESTRING [Concomitant]
     Active Substance: ESTRADIOL

REACTIONS (3)
  - Nasal discomfort [Not Recovered/Not Resolved]
  - Drug ineffective [Not Recovered/Not Resolved]
  - Sneezing [Not Recovered/Not Resolved]

NARRATIVE: CASE EVENT DATE: 201901
